FAERS Safety Report 5340284-9 (Version None)
Quarter: 2007Q2

REPORT INFORMATION
  Report Type: 
  Country: None (occurrence: None)
  Receive Date: 20070405
  Receipt Date: 20070116
  Transmission Date: 20071010
  Serious: No
  Sender: FDA-Public Use
  Company Number: US200701003748

PATIENT
  Sex: Male

DRUGS (2)
  1. CYMBALTA [Suspect]
  2. TRAZODINE (TRAZODONE) [Concomitant]

REACTIONS (2)
  - BLOOD PRESSURE INCREASED [None]
  - DYSPNOEA [None]
